FAERS Safety Report 5386477-6 (Version None)
Quarter: 2007Q3

REPORT INFORMATION
  Report Type: 
  Country: None (occurrence: None)
  Receive Date: 20070713
  Receipt Date: 20070705
  Transmission Date: 20080115
  Serious: Yes (Death, Other)
  Sender: FDA-Public Use
  Company Number: IT-AVENTIS-200716175GDDC

PATIENT
  Age: 76 Year
  Sex: Female

DRUGS (5)
  1. FLUOROURACIL [Suspect]
     Dosage: DOSE: 800 MG/M2 ON DAY 2 OF A 14 DAY/CYCLE
     Route: 042
     Dates: start: 20050201
  2. FOLINIC ACID [Suspect]
     Dosage: DOSE: 250 MG/M2 ON DAY 1 OF A 14 DAY CYCLE
     Route: 042
     Dates: start: 20050201
  3. OXALIPLATIN [Suspect]
     Dosage: DOSE: 100 MG/M2 ON DAY ONE OF A 14 DAY CYCLE
     Route: 042
     Dates: start: 20050201
  4. RALTITREXED [Suspect]
     Dosage: DOSE: 2.5 MG/M2 0N DAY ONE OF A 14 DAY CYCLE
     Route: 042
     Dates: start: 20050201
  5. RADIOTHERAPY [Suspect]
     Dosage: DOSE: 45 GY DELIVERED IN 25 FRACTIONS
     Dates: start: 20050201

REACTIONS (3)
  - METASTASES TO SALIVARY GLAND [None]
  - METASTASES TO SKIN [None]
  - RECTAL CANCER [None]
